FAERS Safety Report 6104261-2 (Version None)
Quarter: 2009Q1

REPORT INFORMATION
  Report Type: 
  Country: None (occurrence: None)
  Receive Date: 20090305
  Receipt Date: 20090304
  Transmission Date: 20090719
  Serious: Yes (Other)
  Sender: FDA-Public Use
  Company Number: PHHO2008BE02906

PATIENT
  Sex: Female
  Weight: 72 kg

DRUGS (2)
  1. CGS 20267 T30748+TAB [Suspect]
     Indication: BREAST CANCER
     Dosage: 2.5 UNK, QD
     Route: 048
     Dates: start: 20071226, end: 20080214
  2. CHEMOTHERAPEUTICS NOS [Suspect]

REACTIONS (4)
  - ABDOMINAL PAIN UPPER [None]
  - ARTHRALGIA [None]
  - MUCOSAL INFLAMMATION [None]
  - NAUSEA [None]
